FAERS Safety Report 7725895-5 (Version None)
Quarter: 2011Q3

REPORT INFORMATION
  Report Type: 
  Country: None (occurrence: None)
  Receive Date: 20110902
  Receipt Date: 20110824
  Transmission Date: 20111222
  Serious: Yes (Hospitalization)
  Sender: FDA-Public Use
  Company Number: PL-JNJFOC-20110507720

PATIENT
  Sex: Male
  Weight: 94 kg

DRUGS (10)
  1. SALMETEROL [Concomitant]
     Indication: RHEUMATOID ARTHRITIS
     Route: 048
     Dates: start: 20050101
  2. FOLIC ACID [Concomitant]
     Route: 048
     Dates: start: 20060622
  3. GOLIMUMAB [Suspect]
     Route: 058
  4. METHOTREXATE [Suspect]
     Indication: RHEUMATOID ARTHRITIS
     Route: 048
     Dates: start: 20060622, end: 20070710
  5. METHOTREXATE [Concomitant]
     Route: 048
     Dates: start: 20080617
  6. GOLIMUMAB [Suspect]
     Route: 058
     Dates: start: 20060718
  7. TORASEMIDUM [Concomitant]
     Route: 048
     Dates: start: 20100423
  8. GOLIMUMAB [Suspect]
     Route: 058
     Dates: start: 20070619
  9. ATROVENT [Concomitant]
     Route: 055
     Dates: start: 20100414
  10. GOLIMUMAB [Suspect]
     Indication: RHEUMATOID ARTHRITIS
     Route: 058
     Dates: start: 20110419

REACTIONS (1)
  - LUNG ADENOCARCINOMA METASTATIC [None]
